FAERS Safety Report 15810633 (Version 1)
Quarter: 2019Q1

REPORT INFORMATION
  Report Type: Spontaneous
  Country: US (occurrence: US)
  Receive Date: 20190111
  Receipt Date: 20190111
  Transmission Date: 20190417
  Serious: No
  Sender: FDA-Public Use
  Company Number: US-ROCHE-2074888

PATIENT
  Sex: Female

DRUGS (6)
  1. RITUXAN [Suspect]
     Active Substance: RITUXIMAB
     Indication: RHEUMATOID ARTHRITIS
     Route: 065
     Dates: start: 20171109, end: 20171121
  2. AZA (AZATHIOPRINE) [Concomitant]
     Active Substance: AZATHIOPRINE
     Route: 065
     Dates: start: 201004
  3. ORENCIA [Suspect]
     Active Substance: ABATACEPT
     Indication: RHEUMATOID ARTHRITIS
     Route: 065
     Dates: start: 201709, end: 201710
  4. ALEVE [Concomitant]
     Active Substance: NAPROXEN SODIUM
  5. HUMIRA [Suspect]
     Active Substance: ADALIMUMAB
     Indication: RHEUMATOID ARTHRITIS
     Route: 058
     Dates: start: 201705, end: 201709
  6. AZA (AZATHIOPRINE) [Concomitant]
     Active Substance: AZATHIOPRINE
     Route: 065
     Dates: start: 201004

REACTIONS (2)
  - Drug effect incomplete [Unknown]
  - No adverse event [Unknown]
